FAERS Safety Report 7961827-2 (Version None)
Quarter: 2011Q4

REPORT INFORMATION
  Report Type: 
  Country: None (occurrence: None)
  Receive Date: 20111207
  Receipt Date: 20111207
  Transmission Date: 20120403
  Serious: Yes (Other)
  Sender: FDA-Public Use
  Company Number: None

PATIENT
  Age: 29 Year
  Sex: Female
  Weight: 68.038 kg

DRUGS (1)
  1. MIRENA [Suspect]
     Indication: CONTRACEPTION
     Dates: start: 20100211, end: 20111215

REACTIONS (7)
  - LIBIDO DECREASED [None]
  - CYST [None]
  - BREAST TENDERNESS [None]
  - DEPRESSION [None]
  - WEIGHT INCREASED [None]
  - MOOD SWINGS [None]
  - ANXIETY [None]
